FAERS Safety Report 7148930-4 (Version None)
Quarter: 2010Q4

REPORT INFORMATION
  Report Type: 
  Country: None (occurrence: None)
  Receive Date: 20101209
  Receipt Date: 20101207
  Transmission Date: 20110411
  Serious: Yes (Disabling)
  Sender: FDA-Public Use
  Company Number: A0898383A

PATIENT
  Sex: Female

DRUGS (1)
  1. SORIATANE [Suspect]
     Indication: PROPHYLACTIC CHEMOTHERAPY
     Dosage: 25MG PER DAY
     Route: 048
     Dates: start: 20100101, end: 20100101

REACTIONS (3)
  - OFF LABEL USE [None]
  - ONYCHOMADESIS [None]
  - SKIN EXFOLIATION [None]
